FAERS Safety Report 5254032-4 (Version None)
Quarter: 2007Q1

REPORT INFORMATION
  Report Type: 
  Country: None (occurrence: None)
  Receive Date: 20070302
  Receipt Date: 20070220
  Transmission Date: 20070707
  Serious: Yes (Life-Threatening, Hospitalization)
  Sender: FDA-Public Use
  Company Number: DEWYE570107FEB07

PATIENT
  Sex: Female
  Weight: 60 kg

DRUGS (4)
  1. VENLAFAXINE HCL [Suspect]
     Indication: DEPRESSION
     Dosage: 75 MG
     Route: 048
     Dates: start: 20070115, end: 20070123
  2. VENLAFAXINE HCL [Suspect]
     Indication: ANXIETY
  3. EUNERPAN [Concomitant]
     Indication: AGITATION
     Dosage: 25 MG
     Route: 048
     Dates: start: 20070129, end: 20070129
  4. DELIX PLUS [Concomitant]
     Indication: HYPERTENSION
     Dosage: 5 MG
     Route: 048
     Dates: start: 20070125, end: 20070129

REACTIONS (7)
  - HYPONATRAEMIA [None]
  - HYPONATRAEMIC ENCEPHALOPATHY [None]
  - INAPPROPRIATE ANTIDIURETIC HORMONE SECRETION [None]
  - NAUSEA [None]
  - SYNCOPE [None]
  - UNRESPONSIVE TO STIMULI [None]
  - VOMITING [None]
